FAERS Safety Report 6015102-6 (Version None)
Quarter: 2008Q4

REPORT INFORMATION
  Report Type: 
  Country: None (occurrence: None)
  Receive Date: 20081222
  Receipt Date: 20081215
  Transmission Date: 20090506
  Serious: Yes (Hospitalization)
  Sender: FDA-Public Use
  Company Number: JP-BRISTOL-MYERS SQUIBB COMPANY-14448187

PATIENT
  Age: 65 Year
  Sex: Male
  Weight: 50 kg

DRUGS (9)
  1. ERBITUX [Suspect]
     Indication: COLORECTAL CANCER RECURRENT
     Route: 042
     Dates: start: 20081105
  2. IRINOTECAN HCL [Suspect]
     Indication: COLORECTAL CANCER RECURRENT
     Route: 042
     Dates: start: 20081105
  3. RESTAMIN [Concomitant]
     Indication: PREMEDICATION
     Dosage: EVERYTIME BEFORE ERBITUX
     Route: 048
  4. DECADRON [Concomitant]
     Indication: PREMEDICATION
     Dosage: EVERYTIME BEFORE ERBITUX
     Route: 042
  5. KYTRIL [Concomitant]
     Indication: PREMEDICATION
     Dosage: INFUSION EVERYTIME BEFORE CPT-11
     Route: 042
  6. OMEPRAL [Concomitant]
     Indication: GASTROOESOPHAGEAL REFLUX DISEASE
     Route: 048
  7. LOXONIN [Concomitant]
     Indication: CANCER PAIN
     Route: 048
  8. SENNOSIDE [Concomitant]
     Indication: CONSTIPATION
     Route: 048
  9. FENTANYL CITRATE [Concomitant]
     Indication: CANCER PAIN
     Dosage: 1DF = 25.2-33.6MG.
     Route: 062

REACTIONS (3)
  - ANOREXIA [None]
  - DIARRHOEA [None]
  - NEUTROPHIL COUNT DECREASED [None]
